FAERS Safety Report 5505961-5 (Version None)
Quarter: 2007Q4

REPORT INFORMATION
  Report Type: 
  Country: None (occurrence: None)
  Receive Date: 20071105
  Receipt Date: 20071029
  Transmission Date: 20080405
  Serious: Yes (Death)
  Sender: FDA-Public Use
  Company Number: GB-WYE-G00539707

PATIENT
  Age: 84 Year
  Sex: Female
  Weight: 65 kg

DRUGS (14)
  1. VENLAFAXIINE HCL [Suspect]
     Indication: DEPRESSION
     Dosage: 150MG FREQUENCY UNKNOWN
     Route: 048
     Dates: start: 20060601
  2. CALCICHEW-D3 [Concomitant]
     Dosage: UNKNOWN
  3. CLONAZEPAM [Concomitant]
     Dosage: 500UG FREQUENCY UNKNOWN
  4. CO-CODAMOL [Concomitant]
     Dosage: UNKNOWN
  5. DIGOXIN [Concomitant]
     Dosage: 125UG FREQUENCY UNKNOWN
  6. ZOLPIDEM TARTRATE [Concomitant]
     Dosage: 5MG FREQUENCY UNKNOWN
  7. MOVICOL [Concomitant]
     Dosage: UNKNOWN
  8. OMEPRAZOLE [Concomitant]
     Dosage: 20MG FREQUENCY UNKNOWN
  9. QUETIAPINE FUMARATE [Concomitant]
     Dosage: 25MG FREQUENCY UNKNOWN
  10. TEARS NATURALE [Concomitant]
     Dosage: UNKNOWN
  11. VERAPAMIL HYDROCHLORIDE [Concomitant]
     Dosage: 120MG FREQUENCY UNKNOWN
  12. VOLTAREN [Concomitant]
     Dosage: 1.16%
  13. ACTONEL [Concomitant]
  14. LEVOTHYROXINE SODIUM [Concomitant]
     Dosage: 100UG FREQUENCY UNKNOWN

REACTIONS (1)
  - ARRHYTHMIA [None]
